FAERS Safety Report 6470703-6 (Version None)
Quarter: 2009Q4

REPORT INFORMATION
  Report Type: 
  Country: None (occurrence: None)
  Receive Date: 20091203
  Receipt Date: 20091123
  Transmission Date: 20100525
  Serious: Yes (Death)
  Sender: FDA-Public Use
  Company Number: A0817030A

PATIENT

DRUGS (9)
  1. ZANAMIVIR [Suspect]
     Dates: start: 20091113, end: 20091114
  2. CEFTRIAXONE [Concomitant]
     Dosage: 1G PER DAY
     Route: 042
     Dates: start: 20091106, end: 20091114
  3. NICOTINE [Concomitant]
     Dosage: 21MG PER DAY
     Route: 061
     Dates: start: 20091108, end: 20091114
  4. HEPARIN [Concomitant]
     Dosage: 5000UNIT TWICE PER DAY
     Route: 058
     Dates: start: 20091106, end: 20091114
  5. ZANTAC [Concomitant]
     Dosage: 150MG TWICE PER DAY
     Route: 050
     Dates: start: 20091106, end: 20091114
  6. ATROVENT [Concomitant]
     Indication: INHALATION THERAPY
     Dosage: 8PUFF SIX TIMES PER DAY
     Route: 055
     Dates: start: 20091106, end: 20091114
  7. VENTOLIN [Concomitant]
     Indication: INHALATION THERAPY
     Dosage: 8PUFF SIX TIMES PER DAY
     Route: 055
     Dates: start: 20091106, end: 20091114
  8. MIDAZOLAM HCL [Concomitant]
     Indication: SEDATION
     Dosage: 10MGH CONTINUOUS
     Route: 042
     Dates: start: 20091106, end: 20091114
  9. FENTANYL [Concomitant]
     Indication: SEDATION
     Dosage: 150MGH CONTINUOUS
     Route: 042
     Dates: start: 20091106, end: 20091114

REACTIONS (3)
  - MYOCARDIAL INFARCTION [None]
  - PULMONARY EMBOLISM [None]
  - SHOCK [None]
